FAERS Safety Report 6666698-2 (Version None)
Quarter: 2010Q2

REPORT INFORMATION
  Report Type: 
  Country: None (occurrence: None)
  Receive Date: 20100405
  Receipt Date: 20100116
  Transmission Date: 20101027
  Serious: Yes (Hospitalization)
  Sender: FDA-Public Use
  Company Number: US-JNJFOC-20100111369

PATIENT
  Age: 14 Year
  Sex: Female
  Weight: 72.58 kg

DRUGS (2)
  1. JUNIOR STRENGTH MOTRIN [Suspect]
     Route: 048
  2. JUNIOR STRENGTH MOTRIN [Suspect]
     Indication: DYSMENORRHOEA
     Dosage: ^ACCORDING TO DIRECTIONS^ AS NEEDED
     Route: 048

REACTIONS (2)
  - COLITIS [None]
  - PRODUCT QUALITY ISSUE [None]
